FAERS Safety Report 9726375 (Version 1)
Quarter: 2013Q4

REPORT INFORMATION
  Report Type: Spontaneous
  Country: NL (occurrence: None)
  Receive Date: 20131129
  Receipt Date: 20131129
  Transmission Date: 20140711
  Serious: Yes (Other)
  Sender: FDA-Public Use
  Company Number: 2013P1021282

PATIENT
  Age: 2 Year
  Sex: Male

DRUGS (2)
  1. INTERFERON GAMMA [Suspect]
     Indication: MYCOBACTERIAL INFECTION
     Dosage: 150 UG/M^2; OQ; SC
     Route: 058
  2. UNSPECIFIED ^ANTIMYCOBACTERIAL THERAPY^ [Concomitant]

REACTIONS (10)
  - Hydrocephalus [None]
  - Condition aggravated [None]
  - Pyrexia [None]
  - Failure to thrive [None]
  - Weight increased [None]
  - Multiple-drug resistance [None]
  - Pleural neoplasm [None]
  - Wound drainage [None]
  - Multi-organ failure [None]
  - Toxicity to various agents [None]
